FAERS Safety Report 10042844 (Version 5)
Quarter: 2014Q2

REPORT INFORMATION
  Report Type: Not Available
  Country: US (occurrence: US)
  Receive Date: 20140327
  Receipt Date: 20140530
  Transmission Date: 20141212
  Serious: Yes (Hospitalization)
  Sender: FDA-Public Use
  Company Number: US-ONYX-2014-0628

PATIENT
  Age: 75 Year
  Sex: Female

DRUGS (3)
  1. KYPROLIS [Suspect]
     Indication: PLASMA CELL MYELOMA
     Route: 042
     Dates: start: 201312, end: 20140314
  2. COUMADIN [Concomitant]
     Indication: VENOUS THROMBOSIS
     Dates: start: 2013
  3. ZOMETA [Concomitant]
     Indication: BONE DISORDER

REACTIONS (3)
  - Gastrointestinal infection [Unknown]
  - Pneumonia [Recovered/Resolved]
  - Renal impairment [Unknown]
